FAERS Safety Report 9612160 (Version 2)
Quarter: 2014Q1

REPORT INFORMATION
  Report Type: Spontaneous
  Country: US (occurrence: US)
  Receive Date: 20131010
  Receipt Date: 20140113
  Transmission Date: 20141002
  Serious: No
  Sender: FDA-Public Use
  Company Number: US-ASTELLAS-2013US010186

PATIENT
  Sex: Female

DRUGS (1)
  1. MYRBETRIQ [Suspect]
     Indication: NOCTURIA
     Dosage: 50 MG, UID/QD
     Route: 048
     Dates: start: 20130909, end: 20131015

REACTIONS (2)
  - Intentional drug misuse [Unknown]
  - Off label use [Unknown]
